FAERS Safety Report 13410769 (Version 4)
Quarter: 2022Q1

REPORT INFORMATION
  Report Type: Spontaneous
  Country: US (occurrence: US)
  Receive Date: 20170406
  Receipt Date: 20220203
  Transmission Date: 20220423
  Serious: No
  Sender: FDA-Public Use
  Company Number: US-JNJFOC-20170308043

PATIENT
  Sex: Male

DRUGS (18)
  1. RISPERIDONE [Suspect]
     Active Substance: RISPERIDONE
     Indication: Attention deficit hyperactivity disorder
     Route: 048
     Dates: start: 20080903
  2. RISPERIDONE [Suspect]
     Active Substance: RISPERIDONE
     Indication: Autism spectrum disorder
     Route: 048
     Dates: end: 20100407
  3. RISPERIDONE [Suspect]
     Active Substance: RISPERIDONE
     Indication: Depression
     Route: 048
     Dates: start: 20130506
  4. RISPERIDONE [Suspect]
     Active Substance: RISPERIDONE
     Indication: Autism spectrum disorder
     Dosage: IF NECESSARY
     Route: 048
     Dates: start: 20131209
  5. RISPERIDONE [Suspect]
     Active Substance: RISPERIDONE
     Indication: Affective disorder
     Dosage: IF NECESSARY
     Route: 048
     Dates: start: 20140212
  6. RISPERIDONE [Suspect]
     Active Substance: RISPERIDONE
     Indication: Anxiety disorder
     Dosage: IF NECESSARY
     Route: 048
     Dates: start: 20140305
  7. RISPERIDONE [Suspect]
     Active Substance: RISPERIDONE
     Dosage: IF NECESSARY
     Route: 048
     Dates: end: 20140320
  8. RISPERIDONE [Suspect]
     Active Substance: RISPERIDONE
     Indication: Attention deficit hyperactivity disorder
     Route: 048
     Dates: start: 20100119
  9. RISPERIDONE [Suspect]
     Active Substance: RISPERIDONE
     Indication: Autism spectrum disorder
     Dosage: 1/2 IN MORNING, 1 AT BEDTIME
     Route: 048
     Dates: start: 20100209
  10. RISPERIDONE [Suspect]
     Active Substance: RISPERIDONE
     Indication: Depression
     Route: 048
     Dates: start: 20100320
  11. RISPERIDONE [Suspect]
     Active Substance: RISPERIDONE
     Indication: Autism spectrum disorder
     Route: 048
     Dates: start: 20130705
  12. RISPERIDONE [Suspect]
     Active Substance: RISPERIDONE
     Dosage: IF NECESSARY
     Route: 048
     Dates: start: 20130826
  13. RISPERDAL M-TAB [Suspect]
     Active Substance: RISPERIDONE
     Indication: Attention deficit hyperactivity disorder
     Dosage: IF NECESSARY FOR OUTBURST
     Route: 048
     Dates: start: 20080903
  14. RISPERDAL M-TAB [Suspect]
     Active Substance: RISPERIDONE
     Indication: Autism spectrum disorder
     Dosage: IF NECESSARY
     Route: 048
     Dates: start: 20081010, end: 20090403
  15. RISPERDAL M-TAB [Suspect]
     Active Substance: RISPERIDONE
     Indication: Depression
     Dosage: IF NECESSARY
     Route: 048
     Dates: start: 20130506
  16. RISPERDAL M-TAB [Suspect]
     Active Substance: RISPERIDONE
     Indication: Autism spectrum disorder
  17. RISPERDAL M-TAB [Suspect]
     Active Substance: RISPERIDONE
     Indication: Emotional disorder
  18. RISPERIDONE [Suspect]
     Active Substance: RISPERIDONE
     Indication: Product used for unknown indication
     Route: 065

REACTIONS (2)
  - Gynaecomastia [Unknown]
  - Emotional distress [Unknown]
